FAERS Safety Report 24310282 (Version 3)
Quarter: 2024Q4

REPORT INFORMATION
  Report Type: Spontaneous
  Country: US (occurrence: US)
  Receive Date: 20240912
  Receipt Date: 20241221
  Transmission Date: 20250115
  Serious: No
  Sender: UNITED THERAPEUTICS
  Company Number: US-UNITED THERAPEUTICS-UNT-2024-015881

PATIENT
  Sex: Female

DRUGS (9)
  1. TYVASO [Suspect]
     Active Substance: TREPROSTINIL
     Indication: Pulmonary arterial hypertension
     Dosage: 18 ?G, QID
     Dates: start: 202405, end: 2024
  2. TYVASO [Suspect]
     Active Substance: TREPROSTINIL
     Dosage: 54 ?G, QID
     Dates: start: 2024, end: 202409
  3. TYVASO [Suspect]
     Active Substance: TREPROSTINIL
     Dosage: 42 ?G, QID
     Dates: start: 202409
  4. TYVASO [Suspect]
     Active Substance: TREPROSTINIL
     Dosage: UNK
  5. OFEV [Suspect]
     Active Substance: NINTEDANIB
     Indication: Idiopathic pulmonary fibrosis
     Dosage: 100 MG, Q12H
     Dates: start: 202312
  6. OFEV [Suspect]
     Active Substance: NINTEDANIB
     Dosage: UNK
  7. OFEV [Suspect]
     Active Substance: NINTEDANIB
     Dosage: UNK
  8. OFEV [Suspect]
     Active Substance: NINTEDANIB
     Dosage: UNK
  9. IMODIUM [Suspect]
     Active Substance: LOPERAMIDE HYDROCHLORIDE
     Indication: Diarrhoea
     Dosage: UNK

REACTIONS (9)
  - Diarrhoea [Unknown]
  - Nausea [Unknown]
  - Dyspnoea [Unknown]
  - Dyspnoea exertional [Unknown]
  - Peripheral swelling [Unknown]
  - Fluid retention [Not Recovered/Not Resolved]
  - Oxygen consumption increased [Unknown]
  - General physical health deterioration [Not Recovered/Not Resolved]
  - Constipation [Unknown]

NARRATIVE: CASE EVENT DATE: 20240101
